FAERS Safety Report 8435447-X (Version None)
Quarter: 2012Q2

REPORT INFORMATION
  Report Type: 
  Country: None (occurrence: None)
  Receive Date: 20120614
  Receipt Date: 20120606
  Transmission Date: 20120825
  Serious: Yes (Hospitalization)
  Sender: FDA-Public Use
  Company Number: US-BAYER-2012-057417

PATIENT
  Age: 48 Year
  Sex: Female
  Weight: 68.5 kg

DRUGS (15)
  1. VERSED [Concomitant]
     Indication: COLONOSCOPY
     Dosage: 5 MG, UNK
     Route: 042
  2. YASMIN [Suspect]
  3. DULCOLAX [DOCUSATE SODIUM] [Concomitant]
     Dosage: 100 MG, UNK
     Route: 048
  4. YAZ [Suspect]
     Indication: MENOPAUSAL SYMPTOMS
  5. VALTREX [Concomitant]
     Indication: ORAL HERPES
     Dosage: 500 MG, QD
     Route: 048
  6. PROMETHAZINE [Concomitant]
     Indication: COLONOSCOPY
     Dosage: 6.25 MG, UNK
     Route: 042
  7. HERBALAX [Concomitant]
     Dosage: 2 TABLETS QD
     Route: 048
  8. DROSPIRENONE AND ETHINYL ESTRADIOL [Suspect]
  9. VERAPAMIL HYDROCHLORIDE [Concomitant]
     Indication: MIGRAINE
     Dosage: 240 MG, QD
     Route: 048
  10. VERAPAMIL HYDROCHLORIDE [Concomitant]
     Indication: PALPITATIONS
  11. SODIUM PHOSPH DIBAS W/SODIUM PHOSPH MONOBAS [Concomitant]
  12. FENTANYL [Concomitant]
     Indication: COLONOSCOPY
     Dosage: 125 ?G, UNK
     Route: 042
  13. MACROBID [Concomitant]
     Indication: URINARY TRACT INFECTION
     Dosage: 100 MG, 1 AFTER INTERCOURSE
     Route: 048
  14. HERBAL LAXATIVE [Concomitant]
     Indication: CONSTIPATION
     Dosage: UNK UNK, QD
  15. CENTRUM [Concomitant]
     Dosage: 1 TABLET QD
     Route: 048

REACTIONS (1)
  - PULMONARY EMBOLISM [None]
